FAERS Safety Report 16861873 (Version 1)
Quarter: 2019Q4

REPORT INFORMATION
  Report Type: Spontaneous
  Country: US (occurrence: US)
  Receive Date: 20190927
  Receipt Date: 20190927
  Transmission Date: 20200122
  Serious: Yes (Hospitalization)
  Sender: FDA-Public Use
  Company Number: None

PATIENT
  Age: 60 Year
  Sex: Female

DRUGS (4)
  1. MAGNESIUM [Concomitant]
     Active Substance: MAGNESIUM
  2. ENOXAPARIN [Concomitant]
     Active Substance: ENOXAPARIN
  3. VITAMIN D [Concomitant]
     Active Substance: VITAMIN D NOS
  4. VOTRIENT [Suspect]
     Active Substance: PAZOPANIB HYDROCHLORIDE
     Indication: RENAL CANCER
     Route: 048

REACTIONS (2)
  - Therapy cessation [None]
  - Cancer surgery [None]

NARRATIVE: CASE EVENT DATE: 20190926
